FAERS Safety Report 12893545 (Version 1)
Quarter: 2016Q4

REPORT INFORMATION
  Report Type: Spontaneous
  Country: US (occurrence: US)
  Receive Date: 20161027
  Receipt Date: 20161027
  Transmission Date: 20170207
  Serious: Yes (Hospitalization)
  Sender: FDA-Public Use
  Company Number: None

PATIENT
  Age: 17 Year
  Sex: Female
  Weight: 66.15 kg

DRUGS (3)
  1. FOLIC ACID. [Concomitant]
     Active Substance: FOLIC ACID
  2. DIPHENHYDRAMINE  HCI [Suspect]
     Active Substance: DIPHENHYDRAMINE HYDROCHLORIDE
     Indication: PRODUCT USED FOR UNKNOWN INDICATION
     Dosage: QUANTITY:32 CAPSULE(S); AT BEDTIME; ORAL?
     Route: 048
     Dates: start: 20161011, end: 20161026
  3. IRON SUPPLEMENT [Concomitant]
     Active Substance: IRON

REACTIONS (4)
  - Muscle spasms [None]
  - Kidney infection [None]
  - Urinary tract infection [None]
  - Back pain [None]

NARRATIVE: CASE EVENT DATE: 20161026
